FAERS Safety Report 8821326 (Version 1)
Quarter: 2012Q4

REPORT INFORMATION
  Report Type: 
  Country: US (occurrence: US)
  Receive Date: 20121002
  Receipt Date: 20121002
  Transmission Date: 20130627
  Serious: No
  Sender: FDA-Public Use
  Company Number: US-ASTRAZENECA-2012SE73542

PATIENT
  Sex: Female

DRUGS (1)
  1. TOPROL-XL [Suspect]
     Indication: ATRIAL FIBRILLATION
     Dosage: 25 MG IN MORNING AND ANOTHER HALF TABLET IN THE AFTERNOON
     Route: 048

REACTIONS (4)
  - Heart rate decreased [Unknown]
  - Atrial fibrillation [Unknown]
  - Intentional drug misuse [Unknown]
  - Intentional drug misuse [Unknown]
